FAERS Safety Report 10301692 (Version 3)
Quarter: 2014Q3

REPORT INFORMATION
  Report Type: Spontaneous
  Country: US (occurrence: None)
  Receive Date: 20140709
  Receipt Date: 20140825
  Transmission Date: 20150326
  Serious: Yes (Hospitalization, Other)
  Sender: FDA-Public Use
  Company Number: UNT-2014-003241

PATIENT
  Age: 83 Year
  Sex: Male

DRUGS (4)
  1. TRACLEER [Concomitant]
     Active Substance: BOSENTAN\BOSENTAN MONOHYDRATE
  2. TYVASO [Suspect]
     Active Substance: TREPROSTINIL
     Indication: PULMONARY ARTERIAL HYPERTENSION
     Route: 055
     Dates: start: 20120302
  3. COUMADIN [Concomitant]
     Active Substance: WARFARIN SODIUM
  4. REVATIO (SILDENAFIL CITRATE) [Concomitant]

REACTIONS (2)
  - Insomnia [None]
  - Convulsion [None]

NARRATIVE: CASE EVENT DATE: 201407
